FAERS Safety Report 8514852-7 (Version None)
Quarter: 2012Q3

REPORT INFORMATION
  Report Type: 
  Country: None (occurrence: None)
  Receive Date: 20120717
  Receipt Date: 20120710
  Transmission Date: 20120928
  Serious: Yes (Death, Hospitalization)
  Sender: FDA-Public Use
  Company Number: DE-ROCHE-1052477

PATIENT
  Sex: Male
  Weight: 82 kg

DRUGS (5)
  1. TELAPREVIR [Suspect]
     Indication: HEPATITIS C
     Dosage: DATE OF LAST DOSE PRIOR TO SAE: 20/MAR/2012
     Route: 048
     Dates: start: 20120214
  2. SPIRONOLACTONE [Concomitant]
     Dosage: DATE OF LAST DOSE PRIOR TO SAE: 20/MAR/2012
  3. PEGASYS [Suspect]
     Indication: HEPATITIS C
     Dosage: DATE OF LAST DOSE PRIOR TO SAE: 14/MAR/2012
     Route: 058
     Dates: start: 20120214
  4. LACTULOSE [Concomitant]
  5. COPEGUS [Suspect]
     Indication: HEPATITIS C
     Dosage: DATE OF LAST DOSE PRIOR TO SAE: 20/MAR/2012
     Route: 048
     Dates: start: 20120214

REACTIONS (1)
  - ACUTE HEPATIC FAILURE [None]
